FAERS Safety Report 12172787 (Version 3)
Quarter: 2016Q4

REPORT INFORMATION
  Report Type: Spontaneous
  Country: US (occurrence: US)
  Receive Date: 20160311
  Receipt Date: 20161229
  Transmission Date: 20170207
  Serious: Yes (Disabling, Other)
  Sender: FDA-Public Use
  Company Number: US-009507513-1603USA004540

PATIENT
  Sex: Male

DRUGS (1)
  1. PROPECIA [Suspect]
     Active Substance: FINASTERIDE
     Indication: ALOPECIA
     Dosage: 1 MG, QD
     Route: 048
     Dates: start: 1999, end: 201108

REACTIONS (36)
  - Loss of libido [Not Recovered/Not Resolved]
  - Brain injury [Unknown]
  - Removal of inert matter from skin or subcutaneous tissue [Unknown]
  - Elbow operation [Unknown]
  - Stomatitis [Not Recovered/Not Resolved]
  - Ligament injury [Unknown]
  - Erectile dysfunction [Not Recovered/Not Resolved]
  - Penis injury [Unknown]
  - Depression [Not Recovered/Not Resolved]
  - Neck surgery [Unknown]
  - Tendon disorder [Not Recovered/Not Resolved]
  - Pain [Not Recovered/Not Resolved]
  - Lower urinary tract symptoms [Not Recovered/Not Resolved]
  - Benign prostatic hyperplasia [Not Recovered/Not Resolved]
  - Sexual dysfunction [Not Recovered/Not Resolved]
  - Knee operation [Unknown]
  - Hypoaesthesia [Unknown]
  - Tinnitus [Unknown]
  - Sexual dysfunction [Unknown]
  - Painful ejaculation [Unknown]
  - Penile size reduced [Unknown]
  - Testicular disorder [Unknown]
  - Shoulder operation [Unknown]
  - Bronchitis chronic [Not Recovered/Not Resolved]
  - Orgasm abnormal [Not Recovered/Not Resolved]
  - Emotional distress [Unknown]
  - Endocrine disorder [Unknown]
  - Ejaculation disorder [Not Recovered/Not Resolved]
  - Intervertebral disc degeneration [Not Recovered/Not Resolved]
  - Substance use [Unknown]
  - Spinal operation [Unknown]
  - Limb operation [Unknown]
  - Insomnia [Not Recovered/Not Resolved]
  - Semen volume decreased [Unknown]
  - Rotator cuff syndrome [Unknown]
  - Vision blurred [Unknown]

NARRATIVE: CASE EVENT DATE: 2002
